FAERS Safety Report 8819496 (Version 1)
Quarter: 2012Q4

REPORT INFORMATION
  Report Type: 
  Country: US (occurrence: US)
  Receive Date: 20120930
  Receipt Date: 20120930
  Transmission Date: 20130627
  Serious: Yes (Other)
  Sender: FDA-Public Use
  Company Number: US-009507513-1209USA010185

PATIENT

DRUGS (2)
  1. FOSAMAX [Suspect]
     Dosage: UNK
     Route: 048
     Dates: start: 20090105, end: 20111111
  2. FOSAMAX [Suspect]
     Dosage: UNK
     Route: 048
     Dates: start: 20090105, end: 20111111

REACTIONS (1)
  - Femur fracture [Unknown]
